FAERS Safety Report 11632454 (Version 2)
Quarter: 2015Q4

REPORT INFORMATION
  Report Type: Spontaneous
  Country: US (occurrence: US)
  Receive Date: 20151015
  Receipt Date: 20151228
  Transmission Date: 20160304
  Serious: Yes (Hospitalization, Other)
  Sender: FDA-Public Use
  Company Number: US-BAYER-2015-444026

PATIENT
  Age: 36 Year
  Sex: Female
  Weight: 63.49 kg

DRUGS (2)
  1. MIRENA [Suspect]
     Active Substance: LEVONORGESTREL
     Indication: CONTRACEPTION
     Dosage: 20 MCG/24HR, CONT
     Route: 015
     Dates: start: 20110624, end: 20121003
  2. MIRENA [Suspect]
     Active Substance: LEVONORGESTREL
     Indication: MENORRHAGIA

REACTIONS (13)
  - Abdominal pain lower [None]
  - Proctalgia [None]
  - Defaecation urgency [None]
  - Uterine perforation [None]
  - Pain [None]
  - Anxiety [None]
  - Injury [None]
  - Emotional distress [None]
  - Vaginal haemorrhage [None]
  - Device issue [None]
  - Stress [None]
  - Device failure [None]
  - Haematochezia [None]

NARRATIVE: CASE EVENT DATE: 2012
